FAERS Safety Report 9324608 (Version 2)
Quarter: 2013Q2

REPORT INFORMATION
  Report Type: Spontaneous
  Country: BR (occurrence: BR)
  Receive Date: 20130603
  Receipt Date: 20130613
  Transmission Date: 20140414
  Serious: Yes (Hospitalization, Disabling, Other)
  Sender: FDA-Public Use
  Company Number: BR-ABBOTT-13P-020-1096679-00

PATIENT
  Age: 55 Year
  Sex: Female
  Weight: 86 kg

DRUGS (5)
  1. HUMIRA [Suspect]
     Indication: RHEUMATOID ARTHRITIS
     Route: 058
     Dates: start: 20100129
  2. HUMIRA [Suspect]
     Route: 058
     Dates: end: 201305
  3. PREDNISONE [Concomitant]
     Indication: RHEUMATOID ARTHRITIS
     Dates: start: 2003
  4. PREDNISONE [Concomitant]
  5. DICLOFENAC [Concomitant]
     Indication: RHEUMATOID ARTHRITIS
     Dosage: IN THE MORNING/AT NIGHT
     Route: 048
     Dates: start: 2003

REACTIONS (12)
  - Lipoatrophy [Not Recovered/Not Resolved]
  - Osteoarthritis [Recovering/Resolving]
  - Limb deformity [Unknown]
  - Drug ineffective [Not Recovered/Not Resolved]
  - Abasia [Recovering/Resolving]
  - Back pain [Recovering/Resolving]
  - Pain [Not Recovered/Not Resolved]
  - Pain in extremity [Recovering/Resolving]
  - Pain in extremity [Not Recovered/Not Resolved]
  - Hand deformity [Not Recovered/Not Resolved]
  - Limb deformity [Not Recovered/Not Resolved]
  - Hypoaesthesia [Not Recovered/Not Resolved]
